FAERS Safety Report 16354559 (Version 1)
Quarter: 2019Q2

REPORT INFORMATION
  Report Type: Spontaneous
  Country: FR (occurrence: FR)
  Receive Date: 20190524
  Receipt Date: 20190524
  Transmission Date: 20190711
  Serious: Yes (Hospitalization)
  Sender: FDA-Public Use
  Company Number: FR-TEVA-2019-FR-1053620

PATIENT
  Age: 36 Year
  Sex: Female
  Weight: 112 kg

DRUGS (4)
  1. TERALITHE [Concomitant]
     Active Substance: LITHIUM CARBONATE
     Indication: SCHIZOPHRENIA
     Route: 048
     Dates: start: 2007
  2. IMOVANE [Suspect]
     Active Substance: ZOPICLONE
     Indication: INSOMNIA
     Dosage: STRENGTH: 7.5 MG
     Route: 048
     Dates: start: 20111102
  3. QUETIAPINE. [Suspect]
     Active Substance: QUETIAPINE
     Indication: SCHIZOPHRENIA
     Route: 048
     Dates: start: 20111221
  4. LYSANXIA [Concomitant]
     Active Substance: PRAZEPAM
     Indication: ANXIETY
     Dosage: STRENGTH: 10 MG
     Route: 048
     Dates: start: 2006

REACTIONS (3)
  - Hyperglycaemia [Recovered/Resolved]
  - Diabetes mellitus [Recovered/Resolved]
  - Condition aggravated [Unknown]

NARRATIVE: CASE EVENT DATE: 20120507
